FAERS Safety Report 4788585-7 (Version None)
Quarter: 2005Q4

REPORT INFORMATION
  Report Type: 
  Country: None (occurrence: None)
  Receive Date: 20051005
  Receipt Date: 20050625
  Transmission Date: 20060501
  Serious: Yes (Hospitalization)
  Sender: FDA-Public Use
  Company Number: US-MERCK-0506USA03607

PATIENT
  Age: 62 Year
  Sex: Female
  Weight: 68 kg

DRUGS (13)
  1. VIOXX [Suspect]
     Indication: RHEUMATOID ARTHRITIS
     Route: 048
     Dates: start: 20000114, end: 20040901
  2. METHOTREXATE [Concomitant]
     Indication: ARTHRITIS
     Route: 065
     Dates: start: 20020101
  3. THEOPHYLLINE [Concomitant]
     Indication: CHRONIC OBSTRUCTIVE PULMONARY DISEASE
     Route: 065
     Dates: start: 20000101
  4. FOLIC ACID [Concomitant]
     Indication: ANAEMIA
     Route: 065
  5. PREDNISONE [Concomitant]
     Indication: ASTHMA
     Route: 065
  6. PREDNISONE [Concomitant]
     Indication: CHRONIC OBSTRUCTIVE PULMONARY DISEASE
     Route: 065
  7. AZULFIDINE [Concomitant]
     Indication: ARTHRITIS
     Route: 065
  8. ACTONEL [Concomitant]
     Indication: BONE DISORDER
     Route: 065
  9. COMBIVENT [Concomitant]
     Indication: CHRONIC OBSTRUCTIVE PULMONARY DISEASE
     Route: 065
  10. COMBIVENT [Concomitant]
     Indication: ASTHMA
     Route: 065
  11. AZMACORT [Concomitant]
     Indication: ASTHMA
     Route: 065
  12. AZMACORT [Concomitant]
     Indication: CHRONIC OBSTRUCTIVE PULMONARY DISEASE
     Route: 065
  13. VITAMINS (UNSPECIFIED) [Concomitant]
     Route: 065

REACTIONS (13)
  - ARTERIOSCLEROSIS [None]
  - BLOOD CHOLESTEROL INCREASED [None]
  - BRONCHITIS [None]
  - BURSITIS [None]
  - CHEST PAIN [None]
  - CHRONIC OBSTRUCTIVE PULMONARY DISEASE [None]
  - DIABETES MELLITUS NON-INSULIN-DEPENDENT [None]
  - HYPERTENSION [None]
  - KNEE ARTHROPLASTY [None]
  - MYOCARDIAL INFARCTION [None]
  - OEDEMA PERIPHERAL [None]
  - SHOCK [None]
  - UROSEPSIS [None]
